FAERS Safety Report 12272442 (Version 3)
Quarter: 2016Q2

REPORT INFORMATION
  Report Type: Report from Study
  Country: US (occurrence: US)
  Receive Date: 20160415
  Receipt Date: 20160428
  Transmission Date: 20160815
  Serious: Yes (Hospitalization)
  Sender: FDA-Public Use
  Company Number: US-JNJFOC-20160413226

PATIENT
  Age: 14 Year
  Sex: Female
  Weight: 82.56 kg

DRUGS (1)
  1. REMICADE [Suspect]
     Active Substance: INFLIXIMAB
     Indication: INFLAMMATORY BOWEL DISEASE
     Route: 042
     Dates: start: 20120515

REACTIONS (1)
  - Lymphadenitis [Recovered/Resolved with Sequelae]

NARRATIVE: CASE EVENT DATE: 20160321
